FAERS Safety Report 25992960 (Version 1)
Quarter: 2025Q4

REPORT INFORMATION
  Report Type: Spontaneous
  Country: CN (occurrence: CN)
  Receive Date: 20251103
  Receipt Date: 20251103
  Transmission Date: 20260118
  Serious: Yes (Other)
  Sender: ABBVIE
  Company Number: CN-ABBVIE-6526085

PATIENT
  Age: 70 Year
  Sex: Female
  Weight: 50 kg

DRUGS (2)
  1. VENETOCLAX [Suspect]
     Active Substance: VENETOCLAX
     Indication: Leukaemia
     Route: 048
     Dates: start: 20250924, end: 20250930
  2. AZACITIDINE [Suspect]
     Active Substance: AZACITIDINE
     Indication: Leukaemia
     Route: 058
     Dates: start: 20250924, end: 20250930

REACTIONS (1)
  - Herpes zoster [Recovering/Resolving]

NARRATIVE: CASE EVENT DATE: 20250930
